FAERS Safety Report 21361801 (Version 1)
Quarter: 2022Q3

REPORT INFORMATION
  Report Type: Spontaneous
  Country: IL (occurrence: IL)
  Receive Date: 20220922
  Receipt Date: 20220922
  Transmission Date: 20221027
  Serious: Yes (Hospitalization, Other)
  Sender: FDA-Public Use
  Company Number: IL-SUN PHARMACEUTICAL INDUSTRIES LTD-2022R1-354912

PATIENT
  Age: 75 Year
  Sex: Male

DRUGS (1)
  1. PREDNISONE [Suspect]
     Active Substance: PREDNISONE
     Indication: Prostate cancer
     Dosage: 5 MILLIGRAM, DAILY
     Route: 065

REACTIONS (5)
  - Nocardiosis [Recovering/Resolving]
  - Hemianopia [Recovering/Resolving]
  - Brain abscess [Recovering/Resolving]
  - Confusional state [Recovering/Resolving]
  - Apraxia [Recovering/Resolving]
